FAERS Safety Report 14222040 (Version 1)
Quarter: 2017Q4

REPORT INFORMATION
  Report Type: Other
  Country: FR (occurrence: FR)
  Receive Date: 20171124
  Receipt Date: 20171124
  Transmission Date: 20180321
  Serious: Yes (Hospitalization, Other)
  Sender: FDA-Public Use
  Company Number: FR-AJANTA PHARMA USA INC.-2034989

PATIENT
  Age: 0 Day
  Sex: Male

DRUGS (2)
  1. HALOPERIDOL. [Concomitant]
     Active Substance: HALOPERIDOL
     Route: 064
  2. OLANZAPINE (ANDA 204320) [Suspect]
     Active Substance: OLANZAPINE
     Indication: SCHIZOPHRENIA
     Route: 064

REACTIONS (7)
  - Hypotonia neonatal [Recovered/Resolved]
  - Neonatal toxicity [Recovered/Resolved]
  - Foetal exposure during pregnancy [Recovered/Resolved]
  - Coma [Recovered/Resolved]
  - Drug withdrawal syndrome neonatal [Recovered/Resolved]
  - Respiratory distress [Recovered/Resolved]
  - Hypoglycaemia [Recovered/Resolved]

NARRATIVE: CASE EVENT DATE: 20170321
